FAERS Safety Report 7260340-8 (Version None)
Quarter: 2011Q1

REPORT INFORMATION
  Report Type: 
  Country: None (occurrence: None)
  Receive Date: 20110130
  Receipt Date: 20101020
  Transmission Date: 20110831
  Serious: No
  Sender: FDA-Public Use
  Company Number: US-ABBOTT-10P-163-0679637-00

PATIENT
  Age: 31 Year
  Sex: Male
  Weight: 95.34 kg

DRUGS (1)
  1. HUMIRA [Suspect]
     Indication: PSORIASIS
     Route: 058
     Dates: start: 20100601

REACTIONS (7)
  - PANIC ATTACK [None]
  - INJECTION SITE HAEMATOMA [None]
  - CONTUSION [None]
  - FATIGUE [None]
  - FALL [None]
  - VISION BLURRED [None]
  - DYSPNOEA [None]
